FAERS Safety Report 16382965 (Version 1)
Quarter: 2019Q2

REPORT INFORMATION
  Report Type: Spontaneous
  Country: CA (occurrence: CA)
  Receive Date: 20190603
  Receipt Date: 20190603
  Transmission Date: 20190711
  Serious: Yes (Hospitalization)
  Sender: FDA-Public Use
  Company Number: CA-PFIZER INC-2019233705

PATIENT
  Age: 79 Year
  Sex: Male
  Weight: 97 kg

DRUGS (2)
  1. PMS PREGABALIN [Suspect]
     Active Substance: PREGABALIN
     Indication: PAIN
     Dosage: 150 MG, 2X/DAY
     Route: 048
  2. PREGABALIN. [Suspect]
     Active Substance: PREGABALIN
     Indication: PAIN
     Dosage: 75 MG, 2X/DAY
     Route: 048

REACTIONS (3)
  - Hypoventilation [Recovered/Resolved]
  - Respiratory depression [Recovered/Resolved]
  - Hyperventilation [Recovered/Resolved]
